FAERS Safety Report 8924904 (Version 1)
Quarter: 2012Q4

REPORT INFORMATION
  Report Type: Spontaneous
  Country: DK (occurrence: None)
  Receive Date: 20121116
  Receipt Date: 20121116
  Transmission Date: 20130627
  Serious: Yes (Other)
  Sender: FDA-Public Use
  Company Number: 2012MA013431

PATIENT
  Age: 28 Year
  Sex: Female

DRUGS (2)
  1. CITALOPRAM HYDROBROMIDE [Suspect]
     Indication: DRUG USE FOR UNKNOWN INDICATION
     Route: 048
     Dates: start: 20121011, end: 20121011
  2. ANAURAN [Concomitant]

REACTIONS (6)
  - Asthenia [None]
  - Dizziness [None]
  - Tension headache [None]
  - Nausea [None]
  - Dysstasia [None]
  - Blood pressure decreased [None]
